FAERS Safety Report 8202814-9 (Version None)
Quarter: 2012Q1

REPORT INFORMATION
  Report Type: 
  Country: None (occurrence: None)
  Receive Date: 20120312
  Receipt Date: 20120312
  Transmission Date: 20120608
  Serious: Yes (Other)
  Sender: FDA-Public Use
  Company Number: None

PATIENT
  Age: 51 Year
  Sex: Male
  Weight: 104.32 kg

DRUGS (4)
  1. OMEPRAZOLE [Suspect]
     Indication: GASTROOESOPHAGEAL REFLUX DISEASE
     Dosage: 20.0 MG
     Route: 048
     Dates: start: 20111010, end: 20120309
  2. OMEPRAZOLE [Concomitant]
     Dosage: 20 MG
     Route: 048
     Dates: start: 20111010, end: 20120309
  3. AMLODYPINE [Concomitant]
  4. BENAZEPRIL HYDROCHLORIDE [Concomitant]

REACTIONS (16)
  - LIP SWELLING [None]
  - SWOLLEN TONGUE [None]
  - BONE PAIN [None]
  - ERYTHEMA [None]
  - DYSPNOEA [None]
  - ABDOMINAL PAIN UPPER [None]
  - CHEST DISCOMFORT [None]
  - SKIN EXFOLIATION [None]
  - SWELLING FACE [None]
  - VISUAL IMPAIRMENT [None]
  - OEDEMA MOUTH [None]
  - DYSPHONIA [None]
  - HEART RATE IRREGULAR [None]
  - OROPHARYNGEAL PAIN [None]
  - FATIGUE [None]
  - BLISTER [None]
